FAERS Safety Report 8991845 (Version 1)
Quarter: 2012Q4

REPORT INFORMATION
  Report Type: 
  Country: IT (occurrence: IT)
  Receive Date: 20121231
  Receipt Date: 20121231
  Transmission Date: 20130627
  Serious: Yes (Hospitalization)
  Sender: FDA-Public Use
  Company Number: PHHY2012IT121062

PATIENT
  Sex: Female

DRUGS (7)
  1. FUROSEMIDE [Suspect]
     Indication: HYPERTENSION
     Dosage: 25 mg, UNK
     Route: 048
     Dates: start: 20000101, end: 20121127
  2. LOSARTAN POTASSIUM [Suspect]
     Indication: HYPERTENSION
     Dosage: 25 mg, UNK
     Route: 048
     Dates: start: 20000101, end: 20121127
  3. SPIRONOLACTONE [Suspect]
     Indication: HYPERTENSION
     Dosage: 100 mg, UNK
     Route: 048
     Dates: start: 20000101, end: 20121127
  4. CARDIOASPIRIN [Concomitant]
  5. ALLOPURINOL [Concomitant]
     Indication: GOUTY ARTHRITIS
  6. SIMVASTATIN [Concomitant]
     Indication: DYSLIPIDAEMIA
  7. PREGABALIN [Concomitant]
     Indication: NEURALGIA

REACTIONS (5)
  - Bradycardia [Recovered/Resolved]
  - Hyperkalaemia [Recovered/Resolved]
  - Electrolyte imbalance [Recovered/Resolved]
  - Syncope [Recovered/Resolved]
  - Electrocardiogram T wave abnormal [Recovered/Resolved]
